FAERS Safety Report 7198096-X (Version None)
Quarter: 2010Q4

REPORT INFORMATION
  Report Type: 
  Country: None (occurrence: None)
  Receive Date: 20101223
  Receipt Date: 20101223
  Transmission Date: 20110411
  Serious: Yes (Other)
  Sender: FDA-Public Use
  Company Number: None

PATIENT
  Sex: Female
  Weight: 63.5036 kg

DRUGS (2)
  1. CARBOPLATIN [Suspect]
     Indication: METASTASES TO LIVER
     Dosage: 180MG QWX3 Q28D
     Dates: start: 20100929, end: 20101215
  2. CARBOPLATIN [Suspect]
     Indication: OVARIAN CANCER METASTATIC
     Dosage: 180MG QWX3 Q28D
     Dates: start: 20100929, end: 20101215

REACTIONS (3)
  - HEART RATE INCREASED [None]
  - INFUSION RELATED REACTION [None]
  - RESPIRATORY DISORDER [None]
